FAERS Safety Report 21071169 (Version 1)
Quarter: 2022Q3

REPORT INFORMATION
  Report Type: Spontaneous
  Country: US (occurrence: US)
  Receive Date: 20220712
  Receipt Date: 20220712
  Transmission Date: 20221027
  Serious: No
  Sender: FDA-Public Use
  Company Number: US-PFIZER INC-PV202200020564

PATIENT
  Age: 60 Year
  Sex: Male

DRUGS (3)
  1. XELJANZ XR [Suspect]
     Active Substance: TOFACITINIB CITRATE
     Indication: Histone antibody positive
     Dosage: UNK
  2. XELJANZ XR [Suspect]
     Active Substance: TOFACITINIB CITRATE
     Indication: Joint effusion
  3. XELJANZ XR [Suspect]
     Active Substance: TOFACITINIB CITRATE
     Indication: Tenosynovitis

REACTIONS (5)
  - Hypertension [Unknown]
  - Hepatic enzyme increased [Unknown]
  - Macrocytosis [Recovered/Resolved]
  - Swelling [Recovered/Resolved]
  - Off label use [Unknown]
